FAERS Safety Report 8976663 (Version 1)
Quarter: 2012Q4

REPORT INFORMATION
  Report Type: 
  Country: US (occurrence: US)
  Receive Date: 20121219
  Receipt Date: 20121219
  Transmission Date: 20130627
  Serious: No
  Sender: FDA-Public Use
  Company Number: US-AMGEN-USASP2012058078

PATIENT
  Age: 58 Year
  Sex: Female
  Weight: 69.39 kg

DRUGS (2)
  1. PROLIA [Suspect]
     Indication: OSTEOPOROSIS POSTMENOPAUSAL
     Dosage: 60 mg, q6mo
     Route: 058
     Dates: start: 20110524
  2. CHLORTHALIDONE [Concomitant]
     Indication: HYPOCALCAEMIA
     Dosage: 25 mg, 3 times/wk
     Route: 048

REACTIONS (2)
  - Rash generalised [Not Recovered/Not Resolved]
  - Drug hypersensitivity [Not Recovered/Not Resolved]
